FAERS Safety Report 14276227 (Version 2)
Quarter: 2018Q1

REPORT INFORMATION
  Report Type: Spontaneous
  Country: JP (occurrence: JP)
  Receive Date: 20171212
  Receipt Date: 20180319
  Transmission Date: 20180508
  Serious: No
  Sender: FDA-Public Use
  Company Number: JP-ELI_LILLY_AND_COMPANY-JP201712003319

PATIENT
  Age: 82 Year
  Sex: Female
  Weight: 66 kg

DRUGS (8)
  1. CALONAL [Concomitant]
     Active Substance: ACETAMINOPHEN
     Indication: SPINAL OSTEOARTHRITIS
     Dosage: 200 G, DAILY
     Route: 048
     Dates: start: 20170522, end: 20170924
  2. MYSLEE [Concomitant]
     Active Substance: ZOLPIDEM TARTRATE
  3. DULOXETINE HYDROCHLORIDE. [Suspect]
     Active Substance: DULOXETINE HYDROCHLORIDE
     Indication: SPINAL OSTEOARTHRITIS
     Dosage: 20 MG, DAILY
     Route: 048
     Dates: start: 20170731, end: 201708
  4. INFREE S [Interacting]
     Active Substance: INDOMETHACIN FARNESIL
     Indication: SPINAL OSTEOARTHRITIS
     Dosage: 200 MG, BID
     Route: 048
     Dates: start: 20170424, end: 20170924
  5. INFREE S [Interacting]
     Active Substance: INDOMETHACIN FARNESIL
     Indication: SCIATICA
  6. MOHRUS [Concomitant]
     Active Substance: KETOPROFEN
     Route: 062
  7. CALONAL [Concomitant]
     Active Substance: ACETAMINOPHEN
     Dosage: 400 G, TID
     Route: 048
     Dates: start: 20170925
  8. AMOBAN [Concomitant]
     Active Substance: ZOPICLONE

REACTIONS (2)
  - Drug eruption [Recovering/Resolving]
  - Drug interaction [Recovering/Resolving]

NARRATIVE: CASE EVENT DATE: 201708
